FAERS Safety Report 9157338 (Version 2)
Quarter: 2013Q2

REPORT INFORMATION
  Report Type: Spontaneous
  Country: US (occurrence: None)
  Receive Date: 20130211
  Receipt Date: 20130412
  Transmission Date: 20140414
  Serious: Yes (Hospitalization)
  Sender: FDA-Public Use
  Company Number: ACO_34079_2013

PATIENT
  Age: 58 Year
  Sex: Male
  Weight: 113.4 kg

DRUGS (4)
  1. AMPYRA (DALFAMPRIDINE) TABLET, 10MG [Suspect]
     Indication: GAIT DISTURBANCE
     Route: 048
     Dates: start: 201212, end: 201301
  2. COPAXONE (GLATIRAMER ACETATE) [Concomitant]
  3. ANTIHYPERTENSIVES [Concomitant]
  4. ALL OTHER THERAPEUTIC PRODUCTS ONGOING [Concomitant]

REACTIONS (6)
  - Thrombosis [None]
  - Pulmonary thrombosis [None]
  - Tremor [None]
  - Gait disturbance [None]
  - Balance disorder [None]
  - Inappropriate schedule of drug administration [None]
